FAERS Safety Report 6057388-8 (Version None)
Quarter: 2009Q1

REPORT INFORMATION
  Report Type: 
  Country: None (occurrence: None)
  Receive Date: 20090126
  Receipt Date: 20090126
  Transmission Date: 20090719
  Serious: Yes (Other)
  Sender: FDA-Public Use
  Company Number: None

PATIENT
  Sex: Female
  Weight: 62.5964 kg

DRUGS (2)
  1. KENALOG [Suspect]
     Indication: HYPERSENSITIVITY
     Dosage: IM
     Route: 030
     Dates: start: 20080616, end: 20080616
  2. KENALOG [Suspect]
     Indication: SEASONAL ALLERGY
     Dosage: IM
     Route: 030
     Dates: start: 20080616, end: 20080616

REACTIONS (2)
  - INJECTION SITE PAIN [None]
  - INJECTION SITE REACTION [None]
